FAERS Safety Report 6273085-8 (Version None)
Quarter: 2009Q3

REPORT INFORMATION
  Report Type: 
  Country: None (occurrence: None)
  Receive Date: 20090715
  Receipt Date: 20090715
  Transmission Date: 20100115
  Serious: No
  Sender: FDA-Public Use
  Company Number: None

PATIENT

DRUGS (2)
  1. FER-IN-SOL 15 MG OF ELEMENTAL IRON/1 ENFAMIL/MEAD JOHNSON [Suspect]
     Indication: MINERAL SUPPLEMENTATION
     Dosage: 1 ML DAILY/AS PRESCRIBE PO
     Route: 048
  2. FERROUS SULFATE 15 MG OF ELEMENTAL RX CHOICE [Suspect]
     Indication: MINERAL SUPPLEMENTATION
     Dosage: 0.6 ML DAILY/AS PRESCRIBE PO
     Route: 048

REACTIONS (3)
  - CIRCUMSTANCE OR INFORMATION CAPABLE OF LEADING TO MEDICATION ERROR [None]
  - MEDICATION ERROR [None]
  - PRODUCT IDENTIFICATION NUMBER ISSUE [None]
